FAERS Safety Report 5335949-9 (Version None)
Quarter: 2007Q1

REPORT INFORMATION
  Report Type: 
  Country: None (occurrence: None)
  Receive Date: 20070302
  Receipt Date: 20060126
  Transmission Date: 20070707
  Serious: Yes (Hospitalization)
  Sender: FDA-Public Use
  Company Number: 2006012773

PATIENT
  Age: 35 Year
  Sex: Male

DRUGS (1)
  1. NASALCROM [Suspect]
     Dosage: NASAL

REACTIONS (1)
  - EPISTAXIS [None]
